FAERS Safety Report 18080740 (Version 1)
Quarter: 2020Q3

REPORT INFORMATION
  Report Type: Spontaneous
  Country: US (occurrence: US)
  Receive Date: 20200728
  Receipt Date: 20200728
  Transmission Date: 20201103
  Serious: No
  Sender: FDA-Public Use
  Company Number: US-GLENMARK PHARMACEUTICALS-2019GMK044108

PATIENT

DRUGS (1)
  1. MUPIROCIN OINTMENT USP, 2% [Suspect]
     Active Substance: MUPIROCIN
     Indication: WOUND INFECTION
     Dosage: UNK, SINGLE (ONLY USED IT ONCE)
     Route: 065
     Dates: start: 20101130, end: 20101130

REACTIONS (2)
  - Product use in unapproved indication [Unknown]
  - Eye pain [Recovering/Resolving]

NARRATIVE: CASE EVENT DATE: 20101130
